FAERS Safety Report 11088834 (Version 1)
Quarter: 2015Q2

REPORT INFORMATION
  Report Type: Spontaneous
  Country: TR (occurrence: TR)
  Receive Date: 20150504
  Receipt Date: 20150504
  Transmission Date: 20150821
  Serious: Yes (Other)
  Sender: FDA-Public Use
  Company Number: TR-TAKEDA-2015TUS005855

PATIENT
  Age: 44 Year
  Sex: Male

DRUGS (4)
  1. METOPROLOL [Concomitant]
     Active Substance: METOPROLOL
     Dosage: UNK
  2. COLCHICINE. [Suspect]
     Active Substance: COLCHICINE
     Indication: GOUTY ARTHRITIS
     Dosage: UNK
     Route: 065
  3. CLOPIDOGREL [Concomitant]
     Active Substance: CLOPIDOGREL BISULFATE
     Dosage: UNK
  4. ACETYLSALICYLIC ACID [Concomitant]
     Active Substance: ASPIRIN
     Dosage: UNK

REACTIONS (1)
  - Acute promyelocytic leukaemia [Recovering/Resolving]
